FAERS Safety Report 5168626-8 (Version None)
Quarter: 2006Q4

REPORT INFORMATION
  Report Type: 
  Country: None (occurrence: None)
  Receive Date: 20061201
  Receipt Date: 20061121
  Transmission Date: 20070319
  Serious: Yes (Other)
  Sender: FDA-Public Use
  Company Number: 2006144375

PATIENT
  Age: 60 Year
  Sex: Male
  Weight: 104.3273 kg

DRUGS (3)
  1. VIAGRA [Suspect]
     Indication: ERECTILE DYSFUNCTION
     Dosage: 50 MG
  2. PREVACID [Concomitant]
  3. FLONASE [Concomitant]

REACTIONS (3)
  - DRUG INEFFECTIVE [None]
  - HIP ARTHROPLASTY [None]
  - PHARMACEUTICAL PRODUCT COMPLAINT [None]
